FAERS Safety Report 10422204 (Version 3)
Quarter: 2014Q4

REPORT INFORMATION
  Report Type: Spontaneous
  Country: US (occurrence: US)
  Receive Date: 20140901
  Receipt Date: 20141204
  Transmission Date: 20150528
  Serious: No
  Sender: FDA-Public Use
  Company Number: US-PFIZER INC-2014240973

PATIENT
  Age: 73 Year
  Sex: Female
  Weight: 81.18 kg

DRUGS (1)
  1. XELJANZ [Suspect]
     Active Substance: TOFACITINIB CITRATE
     Indication: RHEUMATOID ARTHRITIS
     Dosage: 5 MG, 2X/DAY
     Route: 048
     Dates: start: 20140808

REACTIONS (10)
  - Middle insomnia [Unknown]
  - Pruritus [Unknown]
  - Acne [Recovering/Resolving]
  - Rash pruritic [Not Recovered/Not Resolved]
  - Tinnitus [Unknown]
  - Pain [Unknown]
  - Rash papular [Not Recovered/Not Resolved]
  - Hyperhidrosis [Unknown]
  - Feeling hot [Unknown]
  - Rash erythematous [Not Recovered/Not Resolved]

NARRATIVE: CASE EVENT DATE: 20140826
